FAERS Safety Report 6566961-X (Version None)
Quarter: 2010Q1

REPORT INFORMATION
  Report Type: 
  Country: None (occurrence: None)
  Receive Date: 20100202
  Receipt Date: 20100121
  Transmission Date: 20100710
  Serious: Yes (Other)
  Sender: FDA-Public Use
  Company Number: US-SANOFI-AVENTIS-2010SA004916

PATIENT
  Age: 66 Year
  Sex: Male

DRUGS (2)
  1. LANTUS [Suspect]
     Dosage: DOSE:45 UNIT(S)
     Route: 058
  2. NOVOLOG [Concomitant]
     Dosage: SLIDING SCALE

REACTIONS (1)
  - FOOT AMPUTATION [None]
